FAERS Safety Report 22307186 (Version 2)
Quarter: 2023Q2

REPORT INFORMATION
  Report Type: Report from Study
  Country: US (occurrence: None)
  Receive Date: 20230511
  Receipt Date: 20230627
  Transmission Date: 20230722
  Serious: Yes (Life-Threatening, Hospitalization, Other)
  Sender: FDA-Public Use
  Company Number: US-ROCHE-3345896

PATIENT
  Age: 74 Year
  Sex: Male
  Weight: 110 kg

DRUGS (1)
  1. ATEZOLIZUMAB [Suspect]
     Active Substance: ATEZOLIZUMAB
     Indication: Adenocarcinoma of colon
     Dosage: DAYS 1-3
     Route: 041
     Dates: start: 20230313

REACTIONS (2)
  - Sepsis [Recovered/Resolved]
  - Urinary tract infection [Recovering/Resolving]

NARRATIVE: CASE EVENT DATE: 20230313
